FAERS Safety Report 10244099 (Version 1)
Quarter: 2014Q2

REPORT INFORMATION
  Report Type: Report from Study
  Country: ZA (occurrence: ZA)
  Receive Date: 20140618
  Receipt Date: 20140618
  Transmission Date: 20141212
  Serious: Yes (Hospitalization)
  Sender: FDA-Public Use
  Company Number: PHHY2014ZA074896

PATIENT
  Age: 82 Year
  Sex: Male

DRUGS (2)
  1. ACLASTA [Suspect]
     Indication: OSTEOPOROSIS
     Dosage: 05 MG/100 ML
     Dates: start: 201203
  2. ACLASTA [Suspect]
     Dosage: UNK

REACTIONS (2)
  - Localised infection [Recovering/Resolving]
  - Pain [Recovering/Resolving]
